FAERS Safety Report 13471625 (Version 3)
Quarter: 2017Q2

REPORT INFORMATION
  Report Type: Spontaneous
  Country: US (occurrence: US)
  Receive Date: 20170424
  Receipt Date: 20170629
  Transmission Date: 20170830
  Serious: No
  Sender: FDA-Public Use
  Company Number: US-PFIZER INC-2017172884

PATIENT
  Age: 20 Year
  Sex: Female

DRUGS (3)
  1. TALWIN [Suspect]
     Active Substance: PENTAZOCINE LACTATE
     Indication: HEADACHE
  2. TALWIN [Suspect]
     Active Substance: PENTAZOCINE LACTATE
     Indication: PAIN
     Dosage: UNK
     Dates: start: 1982, end: 1982
  3. TALWIN [Suspect]
     Active Substance: PENTAZOCINE LACTATE
     Indication: TOOTHACHE

REACTIONS (4)
  - Malaise [Recovered/Resolved]
  - Paranoia [Recovered/Resolved]
  - Feeling abnormal [Recovered/Resolved]
  - Vertigo [Recovered/Resolved]

NARRATIVE: CASE EVENT DATE: 1982
